FAERS Safety Report 7324574-6 (Version None)
Quarter: 2011Q1

REPORT INFORMATION
  Report Type: 
  Country: None (occurrence: None)
  Receive Date: 20110301
  Receipt Date: 20110216
  Transmission Date: 20110831
  Serious: Yes (Hospitalization, Other)
  Sender: FDA-Public Use
  Company Number: US-CELGENEUS-163-21880-10120941

PATIENT
  Sex: Male

DRUGS (5)
  1. REVLIMID [Suspect]
     Dosage: 10 MILLIGRAM
     Route: 048
     Dates: start: 20101108
  2. REVLIMID [Suspect]
     Indication: MULTIPLE MYELOMA
     Dosage: 10 MILLIGRAM
     Route: 048
     Dates: start: 20100528
  3. ACV [Concomitant]
     Route: 065
  4. ZOMETA [Concomitant]
     Route: 065
  5. TORADOL [Concomitant]
     Indication: DISCOMFORT
     Dosage: 30 MILLIGRAM
     Route: 051

REACTIONS (7)
  - CATARACT [None]
  - CHOLECYSTITIS [None]
  - BRONCHITIS [None]
  - PNEUMONIA [None]
  - PAIN [None]
  - HAEMOPTYSIS [None]
  - PLEURISY [None]
